FAERS Safety Report 18842113 (Version 2)
Quarter: 2021Q1

REPORT INFORMATION
  Report Type: Report from Study
  Country: US (occurrence: US)
  Receive Date: 20210203
  Receipt Date: 20210304
  Transmission Date: 20210419
  Serious: No
  Sender: FDA-Public Use
  Company Number: US-ALLERGAN-2104912US

PATIENT
  Age: 23 Year
  Sex: Male
  Weight: 104.08 kg

DRUGS (2)
  1. CARIPRAZINE HCL 3MG CAP (TBD) [Suspect]
     Active Substance: CARIPRAZINE HYDROCHLORIDE
     Dosage: 1.5 MG, QD
     Route: 048
     Dates: start: 20190503, end: 20190509
  2. CARIPRAZINE HCL 3MG CAP (TBD) [Suspect]
     Active Substance: CARIPRAZINE HYDROCHLORIDE
     Indication: BIPOLAR I DISORDER
     Dosage: 3 MG, QD
     Route: 048
     Dates: start: 20190510, end: 20190811

REACTIONS (1)
  - Visual acuity tests abnormal [Recovered/Resolved]

NARRATIVE: CASE EVENT DATE: 20190819
